FAERS Safety Report 16596399 (Version 2)
Quarter: 2019Q3

REPORT INFORMATION
  Report Type: Spontaneous
  Country: IT (occurrence: IT)
  Receive Date: 20190719
  Receipt Date: 20190809
  Transmission Date: 20191004
  Serious: Yes (Other)
  Sender: FDA-Public Use
  Company Number: IT-BIOGEN-2019BI00763368

PATIENT
  Age: 33 Year
  Sex: Female

DRUGS (1)
  1. SPINRAZA [Suspect]
     Active Substance: NUSINERSEN
     Indication: SPINAL MUSCULAR ATROPHY
     Dosage: MAINTENANCE DOSE
     Route: 037
     Dates: start: 20180510

REACTIONS (1)
  - Cerebral haemangioma [Unknown]

NARRATIVE: CASE EVENT DATE: 201906
